FAERS Safety Report 16475165 (Version 2)
Quarter: 2019Q3

REPORT INFORMATION
  Report Type: Spontaneous
  Country: GR (occurrence: GR)
  Receive Date: 20190625
  Receipt Date: 20190710
  Transmission Date: 20191004
  Serious: Yes (Life-Threatening, Hospitalization, Disabling, Other)
  Sender: FDA-Public Use
  Company Number: GR-009507513-1906GRC008779

PATIENT
  Age: 73 Year
  Sex: Female
  Weight: 49 kg

DRUGS (2)
  1. ACETAMINOFEN [Concomitant]
     Active Substance: ACETAMINOPHEN
     Indication: BACK PAIN
     Dosage: TOTAL DAILY DOSE: 2000 MG (DOSE REPORTED AS 500 MILLIGRAM, PRN)
     Route: 048
     Dates: start: 201901
  2. KEYTRUDA [Suspect]
     Active Substance: PEMBROLIZUMAB
     Indication: MALIGNANT MELANOMA
     Dosage: 200 MILLIGRAM, Q3W
     Dates: start: 20190116, end: 20190410

REACTIONS (3)
  - Postoperative adhesion [Unknown]
  - Gastrointestinal necrosis [Recovered/Resolved with Sequelae]
  - Embolism arterial [Unknown]

NARRATIVE: CASE EVENT DATE: 20190408
